FAERS Safety Report 12385055 (Version 3)
Quarter: 2016Q2

REPORT INFORMATION
  Report Type: Report from Study
  Country: US (occurrence: US)
  Receive Date: 20160519
  Receipt Date: 20160627
  Transmission Date: 20160815
  Serious: Yes (Other)
  Sender: FDA-Public Use
  Company Number: US-VIIV HEALTHCARE LIMITED-US2016GSK068319

PATIENT
  Sex: Female

DRUGS (1)
  1. ZIDOVUDINE. [Suspect]
     Active Substance: ZIDOVUDINE
     Indication: HIV INFECTION
     Dosage: UNK, U
     Route: 064
     Dates: end: 20160405

REACTIONS (4)
  - Ultrasound antenatal screen abnormal [Recovered/Resolved]
  - Foetal exposure during pregnancy [Unknown]
  - Pelvic mass [Recovered/Resolved]
  - Pericardial effusion [Recovered/Resolved]

NARRATIVE: CASE EVENT DATE: 20160427
